FAERS Safety Report 5820505-6 (Version None)
Quarter: 2008Q3

REPORT INFORMATION
  Report Type: 
  Country: None (occurrence: None)
  Receive Date: 20080724
  Receipt Date: 20070828
  Transmission Date: 20090109
  Serious: No
  Sender: FDA-Public Use
  Company Number: A0676995A

PATIENT
  Age: 59 Year
  Sex: Male

DRUGS (5)
  1. AVANDIA [Suspect]
     Dosage: 8MG PER DAY
     Route: 048
     Dates: start: 20050101
  2. LISINOPRIL [Concomitant]
  3. GLYBURIDE [Concomitant]
  4. TERAZOSIN HCL [Concomitant]
  5. METFORMIN [Concomitant]

REACTIONS (2)
  - HYPOTENSION [None]
  - MALAISE [None]
